FAERS Safety Report 6761976 (Version 6)
Quarter: 2013Q3

REPORT INFORMATION
  Report Type: Spontaneous
  Country: IT (occurrence: IT)
  Receive Date: 20080917
  Receipt Date: 20130719
  Transmission Date: 20140515
  Serious: Yes (Life-Threatening, Hospitalization, Disabling, Other)
  Sender: FDA-Public Use
  Company Number: IT-ABBOTT-06P-083-0340206-00

PATIENT
  Age: 61 Year
  Sex: Female

DRUGS (4)
  1. FULCRO [Suspect]
     Indication: METABOLIC SYNDROME
     Route: 048
     Dates: start: 20021010, end: 20031201
  2. FULCRO [Suspect]
     Indication: OBESITY
  3. ZESTORETIC [Concomitant]
     Indication: HYPERTENSION
     Route: 048
  4. LISINOPRIL/HYDROCHLOORTHIAZIDE [Concomitant]
     Indication: PRODUCT USED FOR UNKNOWN INDICATION
     Dosage: 20/12,5  1 TAB PER DAY
     Route: 048

REACTIONS (37)
  - Oedema peripheral [Recovered/Resolved with Sequelae]
  - Muscle rigidity [Recovered/Resolved with Sequelae]
  - Balance disorder [Recovered/Resolved with Sequelae]
  - Listless [Unknown]
  - Psychiatric symptom [Recovering/Resolving]
  - Unevaluable event [Unknown]
  - Disability [Unknown]
  - Polyneuropathy [Recovered/Resolved]
  - Oedema peripheral [Recovered/Resolved]
  - Paraesthesia [Not Recovered/Not Resolved]
  - Dizziness [Recovering/Resolving]
  - Venous insufficiency [Unknown]
  - Metabolic syndrome [Unknown]
  - Insulin resistance [Unknown]
  - Hyperinsulinaemia [Unknown]
  - High density lipoprotein decreased [Unknown]
  - Urticaria [Unknown]
  - Obesity [Unknown]
  - Psoriasis [Unknown]
  - Dermatitis [Unknown]
  - Hypoventilation [Unknown]
  - Glucose tolerance decreased [Unknown]
  - Petechiae [Recovered/Resolved with Sequelae]
  - Purpura [Recovered/Resolved with Sequelae]
  - Paraesthesia [Recovered/Resolved with Sequelae]
  - Arthralgia [Recovered/Resolved with Sequelae]
  - Myalgia [Recovered/Resolved with Sequelae]
  - Skin disorder [Recovered/Resolved with Sequelae]
  - Anaemia [Recovered/Resolved with Sequelae]
  - Balance disorder [Recovered/Resolved with Sequelae]
  - Visual impairment [Recovered/Resolved with Sequelae]
  - Nausea [Recovered/Resolved with Sequelae]
  - Asthenia [Recovering/Resolving]
  - Autonomic neuropathy [Recovering/Resolving]
  - Anxiety [Recovering/Resolving]
  - Gastrointestinal disorder [Not Recovered/Not Resolved]
  - Quality of life decreased [Unknown]
